FAERS Safety Report 24297812 (Version 1)
Quarter: 2024Q3

REPORT INFORMATION
  Report Type: Spontaneous
  Country: US (occurrence: None)
  Receive Date: 20240906
  Receipt Date: 20240906
  Transmission Date: 20241017
  Serious: Yes (Hospitalization)
  Sender: Public
  Company Number: None

PATIENT
  Age: 23 Year
  Sex: Female

DRUGS (1)
  1. QBREXZA [Suspect]
     Active Substance: GLYCOPYRRONIUM TOSYLATE

REACTIONS (5)
  - Vision blurred [None]
  - Mydriasis [None]
  - Miosis [None]
  - Cranial nerve paralysis [None]
  - Cardiac aneurysm [None]

NARRATIVE: CASE EVENT DATE: 20240830
